FAERS Safety Report 4993992-3 (Version None)
Quarter: 2006Q2

REPORT INFORMATION
  Report Type: 
  Country: None (occurrence: None)
  Receive Date: 20060505
  Receipt Date: 20060503
  Transmission Date: 20061013
  Serious: Yes (Hospitalization)
  Sender: FDA-Public Use
  Company Number: DE-GLAXOSMITHKLINE-D0049581A

PATIENT
  Age: 48 Year
  Sex: Male
  Weight: 81 kg

DRUGS (7)
  1. TELZIR [Suspect]
     Indication: HIV INFECTION
     Dosage: 700MG TWICE PER DAY
     Route: 065
     Dates: start: 20041230
  2. EPIVIR [Suspect]
     Indication: HIV INFECTION
     Dosage: 150MG TWICE PER DAY
     Route: 065
     Dates: start: 20041230
  3. ZIAGEN [Suspect]
     Indication: HIV INFECTION
     Dosage: 300MG TWICE PER DAY
     Route: 065
     Dates: start: 20041230
  4. NORVIR [Suspect]
     Indication: HIV INFECTION
     Dosage: 100MG TWICE PER DAY
     Route: 065
     Dates: start: 20041230
  5. LOPERAMID [Concomitant]
     Route: 065
     Dates: start: 20050214, end: 20050711
  6. MUCOFALK [Concomitant]
     Route: 065
     Dates: start: 20050711
  7. ESCITALOPRAM OXALATE [Concomitant]
     Dosage: 10MG PER DAY
     Route: 065
     Dates: start: 20050927

REACTIONS (3)
  - ANXIETY [None]
  - DIARRHOEA [None]
  - FATIGUE [None]
